FAERS Safety Report 9772988 (Version 1)
Quarter: 2013Q4

REPORT INFORMATION
  Report Type: Spontaneous
  Country: FR (occurrence: None)
  Receive Date: 20131217
  Receipt Date: 20131217
  Transmission Date: 20140711
  Serious: Yes (Hospitalization)
  Sender: FDA-Public Use
  Company Number: FR-20130464

PATIENT
  Age: 52 Year
  Sex: Female

DRUGS (1)
  1. HEXABRIX 320 (IOXAGLIC ACID) UNKNOWN [Suspect]
     Indication: SCAN
     Dosage: UNK (1 IN 1 D), INTRA-ARTICULAR
     Route: 014
     Dates: start: 20131003, end: 20131003

REACTIONS (4)
  - Chest discomfort [None]
  - Decreased eye contact [None]
  - Speech disorder [None]
  - Dyskinesia [None]
